FAERS Safety Report 20254905 (Version 3)
Quarter: 2022Q1

REPORT INFORMATION
  Report Type: Spontaneous
  Country: US (occurrence: US)
  Receive Date: 20211230
  Receipt Date: 20220214
  Transmission Date: 20220423
  Serious: No
  Sender: FDA-Public Use
  Company Number: US-GSKCCFUS-Case-01253162_AE-73358

PATIENT
  Sex: Female

DRUGS (1)
  1. BENLYSTA [Suspect]
     Active Substance: BELIMUMAB
     Indication: Systemic lupus erythematosus
     Dosage: 200 MG, WE
     Route: 058
     Dates: start: 2011

REACTIONS (5)
  - Injection site pain [Unknown]
  - Exposure via skin contact [Unknown]
  - Device use error [Unknown]
  - Underdose [Unknown]
  - Product complaint [Unknown]
